FAERS Safety Report 14414965 (Version 1)
Quarter: 2018Q1

REPORT INFORMATION
  Report Type: Spontaneous
  Country: US (occurrence: US)
  Receive Date: 20180118
  Receipt Date: 20180118
  Transmission Date: 20180509
  Serious: No
  Sender: FDA-Public Use
  Company Number: None

PATIENT
  Age: 61 Year
  Sex: Female

DRUGS (1)
  1. IMATINIB MES TAB 100MG [Suspect]
     Active Substance: IMATINIB MESYLATE

REACTIONS (6)
  - Nausea [None]
  - Headache [None]
  - Diarrhoea [None]
  - Dizziness [None]
  - Erythema [None]
  - Drug dose omission [None]

NARRATIVE: CASE EVENT DATE: 20180118
